FAERS Safety Report 7991035-0 (Version None)
Quarter: 2011Q4

REPORT INFORMATION
  Report Type: 
  Country: None (occurrence: None)
  Receive Date: 20111219
  Receipt Date: 20111207
  Transmission Date: 20120403
  Serious: Yes (Death, Other)
  Sender: FDA-Public Use
  Company Number: US-ROCHE-1021099

PATIENT

DRUGS (6)
  1. ETOPOSIDE [Suspect]
     Indication: MANTLE CELL LYMPHOMA
  2. MABTHERA [Suspect]
     Indication: DIFFUSE LARGE B-CELL LYMPHOMA
  3. CYCLOPHOSPHAMIDE [Suspect]
     Indication: DIFFUSE LARGE B-CELL LYMPHOMA
  4. ETOPOSIDE [Suspect]
     Indication: DIFFUSE LARGE B-CELL LYMPHOMA
  5. CYCLOPHOSPHAMIDE [Suspect]
     Indication: MANTLE CELL LYMPHOMA
     Dosage: 1.5 G/M2 DAILY X 4
  6. MABTHERA [Suspect]
     Indication: MANTLE CELL LYMPHOMA

REACTIONS (11)
  - SYSTEMIC CANDIDA [None]
  - NEUTROPENIA [None]
  - FEBRILE NEUTROPENIA [None]
  - PANCYTOPENIA [None]
  - BACTERAEMIA [None]
  - THROMBOCYTOPENIA [None]
  - MYELODYSPLASTIC SYNDROME [None]
  - DIVERTICULITIS [None]
  - DEVICE RELATED INFECTION [None]
  - MUCOSAL INFLAMMATION [None]
  - NEUROTOXICITY [None]
